FAERS Safety Report 4501712-1 (Version None)
Quarter: 2004Q4

REPORT INFORMATION
  Report Type: 
  Country: None (occurrence: None)
  Receive Date: 20041109
  Receipt Date: 20041027
  Transmission Date: 20050328
  Serious: Yes (Other)
  Sender: FDA-Public Use
  Company Number: S04-CAN-06399-01

PATIENT
  Age: 80 Year
  Sex: Male

DRUGS (4)
  1. MEMANTINE [Suspect]
     Indication: DEMENTIA
     Dosage: 10 MG BID PO
     Route: 048
     Dates: start: 20040101, end: 20040922
  2. REMINYL [Suspect]
     Indication: DEMENTIA
     Dosage: 24 MG QD PO
     Route: 048
     Dates: start: 20040303
  3. RISPERDAL [Suspect]
     Indication: DEMENTIA
     Dosage: 0.25 MG QD PO
     Route: 048
     Dates: start: 20040316
  4. IMOVANE (ZOPICLONE) [Concomitant]

REACTIONS (3)
  - GRAND MAL CONVULSION [None]
  - INSOMNIA [None]
  - IRRITABILITY [None]
